FAERS Safety Report 23578097 (Version 2)
Quarter: 2024Q2

REPORT INFORMATION
  Report Type: Spontaneous
  Country: JP (occurrence: JP)
  Receive Date: 20240229
  Receipt Date: 20240416
  Transmission Date: 20240716
  Serious: Yes (Other)
  Sender: FDA-Public Use
  Company Number: JP-KYOWAKIRIN-2024KK002645

PATIENT
  Age: 8 Decade
  Sex: Female

DRUGS (4)
  1. ROMIPLOSTIM [Suspect]
     Active Substance: ROMIPLOSTIM
     Indication: Aplastic anaemia
     Dosage: 20 UG/KG, 1X/WEEK, THE DOSE OF ROMIPLATE WAS INCREASED FROM THE INITIAL DOSE UP TO 20 MICROGRAMS/KG
     Route: 058
  2. ATGAM [Concomitant]
     Active Substance: EQUINE THYMOCYTE IMMUNE GLOBULIN
     Indication: Product used for unknown indication
     Dosage: UNK
     Route: 065
  3. CYCLOSPORINE [Concomitant]
     Active Substance: CYCLOSPORINE
     Indication: Product used for unknown indication
     Dosage: UNK
     Route: 065
  4. PREDNISOLONE [Concomitant]
     Active Substance: PREDNISOLONE
     Indication: Product used for unknown indication
     Dosage: UNK, THE PATIENT HAD BEEN ON PREDNISOLONE FOR APPROXIMATELY 10 YEARS
     Route: 065

REACTIONS (1)
  - Cytomegalovirus infection reactivation [Unknown]
